FAERS Safety Report 17798744 (Version 1)
Quarter: 2020Q2

REPORT INFORMATION
  Report Type: Spontaneous
  Country: US (occurrence: US)
  Receive Date: 20200518
  Receipt Date: 20200518
  Transmission Date: 20200714
  Serious: Yes (Other)
  Sender: FDA-Public Use
  Company Number: None

PATIENT
  Age: 61 Year
  Sex: Male
  Weight: 76.5 kg

DRUGS (9)
  1. FIASP [Suspect]
     Active Substance: INSULIN ASPART
     Indication: DIABETES MELLITUS
     Dosage: ?          QUANTITY:1500 INJECTION(S);?
     Route: 058
     Dates: start: 20180516, end: 20200513
  2. SIMVASTATIN. [Concomitant]
     Active Substance: SIMVASTATIN
  3. LANTUS [Concomitant]
     Active Substance: INSULIN GLARGINE
  4. LISPRO INSULIN [Concomitant]
     Active Substance: INSULIN LISPRO
  5. LISINOPRIL. [Concomitant]
     Active Substance: LISINOPRIL
  6. LORATIDINE [Concomitant]
     Active Substance: LORATADINE
  7. CENTRUM MEN^S SENIOR [Concomitant]
  8. MOBIC [Concomitant]
     Active Substance: MELOXICAM
  9. HUMALOG [Suspect]
     Active Substance: INSULIN LISPRO

REACTIONS (2)
  - Rash [None]
  - Product substitution issue [None]

NARRATIVE: CASE EVENT DATE: 20200518
